FAERS Safety Report 20978800 (Version 1)
Quarter: 2022Q2

REPORT INFORMATION
  Report Type: Spontaneous
  Country: NL (occurrence: NL)
  Receive Date: 20220619
  Receipt Date: 20220619
  Transmission Date: 20220721
  Serious: Yes (Other)
  Sender: FDA-Public Use
  Company Number: None

PATIENT
  Sex: Male
  Weight: 90 kg

DRUGS (4)
  1. OLANZAPINE [Suspect]
     Active Substance: OLANZAPINE
     Indication: Mania
     Dosage: 10 MILLIGRAM DAILY; 1DD10MG BRAND NAME NOT SPECIFIED,
     Dates: start: 20220310, end: 20220311
  2. APIXABAN [Concomitant]
     Active Substance: APIXABAN
     Dosage: BRAND NAME NOT SPECIFIED ,THERAPY START DATE AND END DATE : ASKU , FORM STRENGTH : 2.5 MG
  3. LITHIUM CARBONATE [Concomitant]
     Active Substance: LITHIUM CARBONATE
     Dosage: 500 MILLIGRAM DAILY; 1DD500MG LITHIUMCARBONAAT,/ BRAND NAME NOT SPECIFIED , THERAPY START DATE AND E
  4. LORAZEPAM [Concomitant]
     Active Substance: LORAZEPAM
     Dosage: BRAND NAME NOT SPECIFIED ,THERAPY START DATE AND END DATE : ASKU , FORM STRENGTH : 1 MG

REACTIONS (1)
  - Apnoea [Recovered/Resolved]
